FAERS Safety Report 17269708 (Version 2)
Quarter: 2020Q1

REPORT INFORMATION
  Report Type: Spontaneous
  Country: US (occurrence: US)
  Receive Date: 20200114
  Receipt Date: 20200204
  Transmission Date: 20200409
  Serious: Yes (Other)
  Sender: FDA-Public Use
  Company Number: US-ALLERGAN-1953288US

PATIENT
  Sex: Female

DRUGS (4)
  1. LEXAPRO [Suspect]
     Active Substance: ESCITALOPRAM OXALATE
     Indication: DEPRESSION
     Dosage: UNK
     Dates: end: 201907
  2. LEXAPRO [Suspect]
     Active Substance: ESCITALOPRAM OXALATE
     Dosage: 20 MG
     Dates: start: 20160115
  3. LEXAPRO [Suspect]
     Active Substance: ESCITALOPRAM OXALATE
     Dosage: UNK
     Dates: start: 201905
  4. LEXAPRO [Suspect]
     Active Substance: ESCITALOPRAM OXALATE
     Dosage: 10 MG
     Route: 065
     Dates: start: 2012

REACTIONS (15)
  - Atrophy [Recovering/Resolving]
  - Pain [Unknown]
  - Emotional distress [Unknown]
  - Anal incontinence [Recovering/Resolving]
  - Therapy cessation [Unknown]
  - Large intestine polyp [Unknown]
  - Urinary incontinence [Recovering/Resolving]
  - Gait disturbance [Recovering/Resolving]
  - Blood glucose decreased [Unknown]
  - Gastrointestinal perforation [Unknown]
  - Bedridden [Recovering/Resolving]
  - Scoliosis [Recovering/Resolving]
  - Dizziness [Recovering/Resolving]
  - Diverticulum [Unknown]
  - Irritable bowel syndrome [Unknown]
